FAERS Safety Report 9683532 (Version 4)
Quarter: 2014Q1

REPORT INFORMATION
  Report Type: Spontaneous
  Country: JP (occurrence: JP)
  Receive Date: 20131112
  Receipt Date: 20140213
  Transmission Date: 20141002
  Serious: Yes (Other)
  Sender: FDA-Public Use
  Company Number: PHHY2013JP127278

PATIENT
  Sex: Male
  Weight: 2 kg

DRUGS (1)
  1. APRESOLINE [Suspect]
     Route: 064

REACTIONS (7)
  - Respiratory disorder neonatal [Unknown]
  - Transient tachypnoea of the newborn [Unknown]
  - Premature baby [Unknown]
  - Low birth weight baby [Unknown]
  - Tachycardia [Unknown]
  - Jaundice [Unknown]
  - Foetal exposure during pregnancy [Unknown]
